FAERS Safety Report 20157169 (Version 1)
Quarter: 2021Q4

REPORT INFORMATION
  Report Type: Spontaneous
  Country: US (occurrence: US)
  Receive Date: 20211207
  Receipt Date: 20211207
  Transmission Date: 20220303
  Serious: No
  Sender: FDA-Public Use
  Company Number: US-BRAINTREE LABORATORIES, INC.-2021BTE00883

PATIENT
  Age: 71 Year
  Sex: Male

DRUGS (3)
  1. SUTAB [Suspect]
     Active Substance: MAGNESIUM SULFATE\POTASSIUM CHLORIDE\SODIUM SULFATE
     Indication: Colonoscopy
     Dosage: 2 X 12 TABLETS, 1X
     Route: 048
     Dates: start: 20211027, end: 20211028
  2. METFORMIN [Concomitant]
     Active Substance: METFORMIN HYDROCHLORIDE
     Dosage: UNK
     Dates: end: 20211026
  3. UNSPECIFIED ANTIDIABETIC MEDICATION [Concomitant]
     Dosage: UNK
     Dates: end: 20211026

REACTIONS (4)
  - Drug ineffective [Recovered/Resolved]
  - Constipation [Recovered/Resolved]
  - Faeces hard [Recovered/Resolved]
  - Emotional distress [Unknown]

NARRATIVE: CASE EVENT DATE: 20211001
